FAERS Safety Report 9260595 (Version 1)
Quarter: 2013Q2

REPORT INFORMATION
  Report Type: Spontaneous
  Country: DE (occurrence: GB)
  Receive Date: 20130429
  Receipt Date: 20130429
  Transmission Date: 20140414
  Serious: Yes (Other)
  Sender: FDA-Public Use
  Company Number: DE-BRISTOL-MYERS SQUIBB COMPANY-18808584

PATIENT
  Age: 23 Year
  Sex: Male
  Weight: 95.25 kg

DRUGS (1)
  1. ABILIFY [Suspect]
     Indication: MAJOR DEPRESSION
     Route: 048
     Dates: start: 20120312

REACTIONS (2)
  - Impaired driving ability [Not Recovered/Not Resolved]
  - Eye movement disorder [Not Recovered/Not Resolved]
